FAERS Safety Report 4910126-1 (Version None)
Quarter: 2006Q1

REPORT INFORMATION
  Report Type: 
  Country: None (occurrence: None)
  Receive Date: 20060209
  Receipt Date: 20060202
  Transmission Date: 20060701
  Serious: Yes (Other)
  Sender: FDA-Public Use
  Company Number: S05-USA-04895-01

PATIENT
  Age: 49 Year
  Sex: Male

DRUGS (5)
  1. CAMPRAL [Suspect]
     Indication: ALCOHOLISM
     Dosage: 333 MG BID PO
     Route: 048
     Dates: start: 20051020, end: 20051109
  2. CAMPRAL [Suspect]
     Indication: ALCOHOLISM
     Dosage: 333 MG QD PO
     Route: 048
     Dates: start: 20051110
  3. METOPROLOL [Concomitant]
  4. DILTIAZEM HCL [Concomitant]
  5. REMERON [Concomitant]

REACTIONS (4)
  - BLOOD GLUCOSE INCREASED [None]
  - BLOOD SODIUM DECREASED [None]
  - POLLAKIURIA [None]
  - THIRST [None]
